FAERS Safety Report 10198180 (Version 1)
Quarter: 2014Q2

REPORT INFORMATION
  Report Type: Spontaneous
  Country: US (occurrence: US)
  Receive Date: 20140527
  Receipt Date: 20140527
  Transmission Date: 20141212
  Serious: No
  Sender: FDA-Public Use
  Company Number: US-NOVEN-13US007540

PATIENT
  Age: 32 Year
  Sex: Female
  Weight: 54.42 kg

DRUGS (3)
  1. DAYTRANA [Suspect]
     Indication: NARCOLEPSY
     Dosage: 30 MG, UNK
     Route: 062
     Dates: start: 201305
  2. RITALIN [Concomitant]
     Indication: NARCOLEPSY
     Dosage: 20 MG, BEDTIME
     Route: 048
  3. XYREM [Concomitant]
     Indication: NARCOLEPSY
     Dosage: UNK
     Route: 048

REACTIONS (6)
  - Drug ineffective [Not Recovered/Not Resolved]
  - Wrong technique in drug usage process [Not Recovered/Not Resolved]
  - Drug administration error [Not Recovered/Not Resolved]
  - Drug prescribing error [Not Recovered/Not Resolved]
  - Off label use [Not Recovered/Not Resolved]
  - Product quality issue [Not Recovered/Not Resolved]
